FAERS Safety Report 11137821 (Version 5)
Quarter: 2016Q4

REPORT INFORMATION
  Report Type: Spontaneous
  Country: US (occurrence: US)
  Receive Date: 20150526
  Receipt Date: 20161102
  Transmission Date: 20170206
  Serious: Yes (Hospitalization, Other)
  Sender: FDA-Public Use
  Company Number: US-PFIZER INC-2015173427

PATIENT
  Age: 77 Year
  Sex: Female
  Weight: 50 kg

DRUGS (27)
  1. REVATIO [Suspect]
     Active Substance: SILDENAFIL CITRATE
     Indication: LUNG DISORDER
     Dosage: 20 MG, 3X/DAY
  2. DIGOXIN. [Concomitant]
     Active Substance: DIGOXIN
     Dosage: 125 UG, 2X/DAY
     Route: 048
  3. SLOW-MAG [Concomitant]
     Active Substance: MAGNESIUM CHLORIDE
     Dosage: 64 MG, 1X/DAY (1 PO QD)
     Route: 048
  4. LETAIRIS [Concomitant]
     Active Substance: AMBRISENTAN
     Dosage: 1 DF, DAILY
     Route: 048
  5. CARVEDILOL. [Concomitant]
     Active Substance: CARVEDILOL
     Dosage: 3.125 MG, 1 TABLET 2X/DAY
     Route: 048
  6. FUROSEMIDE. [Concomitant]
     Active Substance: FUROSEMIDE
     Indication: WEIGHT INCREASED
     Dosage: 40 MG, 1X/DAY
     Route: 048
  7. WARFARIN [Concomitant]
     Active Substance: WARFARIN
     Dosage: 3 MG, UNK (AS DIRECTED BY PCP)
  8. COUMADIN [Concomitant]
     Active Substance: WARFARIN SODIUM
     Indication: DEEP VEIN THROMBOSIS
     Dosage: UNK
  9. DIGOXIN. [Concomitant]
     Active Substance: DIGOXIN
     Dosage: 125 UG, 1X/DAY (TAKE 1 TABLET EVERY DAY FOR 90 DAYS)
     Route: 048
  10. SPIRONOLACTONE. [Concomitant]
     Active Substance: SPIRONOLACTONE
     Dosage: 25 MG, 1 TABLET  1X/DAY
     Route: 048
  11. WARFARIN [Concomitant]
     Active Substance: WARFARIN
     Dosage: 2 MG, UNK
  12. OXYMETAZOLINE [Concomitant]
     Active Substance: OXYMETAZOLINE
     Dosage: UNK  AS NEEDED
  13. LETAIRIS [Concomitant]
     Active Substance: AMBRISENTAN
     Dosage: 5 MG, 1X/DAY
     Route: 048
  14. MYRBETRIQ [Concomitant]
     Active Substance: MIRABEGRON
     Dosage: 1 DF, DAILY
     Route: 048
  15. REVATIO [Suspect]
     Active Substance: SILDENAFIL CITRATE
     Indication: CARDIAC DISORDER
     Dosage: 20 MG, 3X/DAY
     Dates: start: 2009
  16. REVATIO [Suspect]
     Active Substance: SILDENAFIL CITRATE
     Indication: PULMONARY HYPERTENSION
     Dosage: 40 MG, 3X/DAY (2 TABLETS THREE TIMES A DAY)
     Route: 048
  17. REVATIO [Suspect]
     Active Substance: SILDENAFIL CITRATE
     Dosage: 1 TABLET THREE TIMES A DAY
     Dates: start: 20160407
  18. TRACLEER [Concomitant]
     Active Substance: BOSENTAN
     Dosage: 125 MG, 2X/DAY
     Route: 048
  19. OXYCODONE AND ACETAMINOPHEN [Concomitant]
     Active Substance: ACETAMINOPHEN\OXYCODONE HYDROCHLORIDE
     Dosage: 1 TABLET 4X/DAY(OXYCODONE-10 MG,ACETAMINOPHEN- 325 MG)
     Route: 048
  20. MYRBETRIQ [Concomitant]
     Active Substance: MIRABEGRON
     Dosage: 25 MG, 1X/DAY
     Route: 048
  21. NEOSYNEPHRINE [Concomitant]
     Active Substance: PHENYLEPHRINE HYDROCHLORIDE
     Dosage: AS NEEDED
  22. KLOR-CON [Concomitant]
     Active Substance: POTASSIUM CHLORIDE
     Dosage: 8 MEQ, 1X/DAY AS NEEDED WHEN TAKING FUROSEMIDE WITH FUROSEMIDE (LASIX)
     Route: 048
  23. FUROSEMIDE. [Concomitant]
     Active Substance: FUROSEMIDE
     Dosage: 40 MG, AS NEEDED
     Route: 048
  24. WARFARIN [Concomitant]
     Active Substance: WARFARIN
     Dosage: 3 MG, UNK
  25. AZELASTINE [Concomitant]
     Active Substance: AZELASTINE
     Dosage: 205.5 UG, UNK
     Route: 045
  26. FLUTICASONE [Concomitant]
     Active Substance: FLUTICASONE\FLUTICASONE PROPIONATE
     Dosage: 50 UG, UNK
     Route: 045
  27. VITAMIN C [Concomitant]
     Active Substance: ASCORBIC ACID
     Dosage: 1 DF, 1X/DAY
     Route: 048

REACTIONS (16)
  - Vascular stent restenosis [Recovered/Resolved]
  - Confusional state [Recovered/Resolved]
  - Pain [Unknown]
  - Epistaxis [Recovered/Resolved]
  - Scoliosis [Not Recovered/Not Resolved]
  - Haemorrhage [Unknown]
  - Dyspnoea [Recovered/Resolved]
  - Oedema [Unknown]
  - Product use issue [Unknown]
  - Nasal congestion [Unknown]
  - Drug ineffective [Unknown]
  - Cardiac failure congestive [Recovered/Resolved]
  - Chest pain [Recovered/Resolved]
  - Hypotension [Unknown]
  - Fluid overload [Recovered/Resolved]
  - Oedema peripheral [Unknown]

NARRATIVE: CASE EVENT DATE: 2010
